FAERS Safety Report 15712890 (Version 5)
Quarter: 2023Q1

REPORT INFORMATION
  Report Type: Spontaneous
  Country: PT (occurrence: PT)
  Receive Date: 20181212
  Receipt Date: 20230315
  Transmission Date: 20230418
  Serious: Yes (Hospitalization, Other)
  Sender: FDA-Public Use
  Company Number: PHHY2018PT179910

PATIENT
  Age: 82 Year
  Sex: Female

DRUGS (3)
  1. AMOXICILLIN\CLAVULANATE POTASSIUM [Suspect]
     Active Substance: AMOXICILLIN\CLAVULANATE POTASSIUM
     Indication: Wound infection
     Dosage: 2 MG, QD (875 PLUS 125 MG EVERY 12 HOUR, BID)
     Route: 065
  2. CEFTRIAXONE [Concomitant]
     Active Substance: CEFTRIAXONE
     Indication: Product used for unknown indication
     Dosage: UNK
     Route: 065
  3. DOXYCYCLINE [Concomitant]
     Active Substance: DOXYCYCLINE
     Indication: Product used for unknown indication
     Dosage: UNK
     Route: 065

REACTIONS (8)
  - Dementia [Recovering/Resolving]
  - Acute kidney injury [Recovering/Resolving]
  - Peripheral arterial occlusive disease [Recovering/Resolving]
  - Delirium [Recovered/Resolved]
  - Altered state of consciousness [Recovering/Resolving]
  - Sepsis [Recovering/Resolving]
  - Condition aggravated [Recovered/Resolved]
  - Drug ineffective [Unknown]
